FAERS Safety Report 13262144 (Version 4)
Quarter: 2018Q1

REPORT INFORMATION
  Report Type: Report from Study
  Country: JP (occurrence: JP)
  Receive Date: 20170222
  Receipt Date: 20180221
  Transmission Date: 20180508
  Serious: Yes (Death, Hospitalization)
  Sender: FDA-Public Use
  Company Number: JP-ASTRAZENECA-2017SE18793

PATIENT
  Age: 55 Year
  Sex: Male
  Weight: 66 kg

DRUGS (2)
  1. TAGRISSO [Suspect]
     Active Substance: OSIMERTINIB
     Indication: NON-SMALL CELL LUNG CANCER
     Route: 048
     Dates: start: 20161201, end: 20171031
  2. ZONISAMIDE. [Suspect]
     Active Substance: ZONISAMIDE
     Indication: HOLMES TREMOR
     Route: 048
     Dates: start: 20170614, end: 20170623

REACTIONS (3)
  - Somnolence [Recovering/Resolving]
  - Tumour necrosis [Not Recovered/Not Resolved]
  - Holmes tremor [Not Recovered/Not Resolved]

NARRATIVE: CASE EVENT DATE: 20170207
